FAERS Safety Report 9355040 (Version 3)
Quarter: 2013Q3

REPORT INFORMATION
  Report Type: Spontaneous
  Country: CA (occurrence: CA)
  Receive Date: 20130619
  Receipt Date: 20130821
  Transmission Date: 20140515
  Serious: Yes (Other)
  Sender: FDA-Public Use
  Company Number: CA-TEVA-412979USA

PATIENT
  Sex: 0

DRUGS (2)
  1. COPAXONE [Suspect]
     Dates: start: 2011
  2. COPAXONE [Suspect]
     Dates: start: 20130626

REACTIONS (1)
  - B-cell lymphoma [Not Recovered/Not Resolved]
